FAERS Safety Report 4541575-1 (Version None)
Quarter: 2004Q4

REPORT INFORMATION
  Report Type: 
  Country: None (occurrence: None)
  Receive Date: 20041230
  Receipt Date: 20041209
  Transmission Date: 20050328
  Serious: Yes (Death, Life-Threatening)
  Sender: FDA-Public Use
  Company Number: PHBS2004JP16520

PATIENT
  Age: 39 Year
  Sex: Male
  Weight: 74 kg

DRUGS (9)
  1. SANDIMMUNE [Suspect]
     Indication: BONE MARROW TRANSPLANT
     Dosage: UNK, UNK
     Dates: start: 20041114
  2. BUSULFAN [Concomitant]
     Dosage: 280 MG/DAY
     Route: 048
     Dates: start: 20041108, end: 20041111
  3. ENDOXAN [Concomitant]
     Dosage: 4.2 G/DAY
     Dates: start: 20041112, end: 20041113
  4. FRAGMIN [Concomitant]
     Dates: start: 20041013, end: 20041125
  5. ZOVIRAX [Concomitant]
     Dosage: 750 MG/D
     Dates: start: 20041123, end: 20041125
  6. CARBENIN [Concomitant]
     Dosage: 1 G/D
     Dates: start: 20041119, end: 20041123
  7. VANCOMYCIN [Concomitant]
     Dosage: 1 G/D
     Dates: start: 20041110, end: 20041123
  8. HABEKACIN [Concomitant]
     Dosage: 200 MG/D
     Route: 065
     Dates: start: 20041124
  9. MEROPEN [Concomitant]
     Dosage: 1 G/D
     Dates: start: 20041124, end: 20041125

REACTIONS (9)
  - CELLULITIS [None]
  - CONVULSION [None]
  - DEPRESSED LEVEL OF CONSCIOUSNESS [None]
  - DYSPNOEA [None]
  - ELECTROENCEPHALOGRAM ABNORMAL [None]
  - LOCAL SWELLING [None]
  - MYDRIASIS [None]
  - NERVOUS SYSTEM DISORDER [None]
  - PUPILLARY REFLEX IMPAIRED [None]
